FAERS Safety Report 16879661 (Version 2)
Quarter: 2019Q4

REPORT INFORMATION
  Report Type: Report from Study
  Country: CO (occurrence: CO)
  Receive Date: 20191003
  Receipt Date: 20191031
  Transmission Date: 20200122
  Serious: Yes (Life-Threatening, Hospitalization, Other)
  Sender: FDA-Public Use
  Company Number: PHHY2019CO164693

PATIENT
  Age: 62 Year
  Sex: Male
  Weight: 84 kg

DRUGS (12)
  1. REVOLADE [Suspect]
     Active Substance: ELTROMBOPAG
     Indication: IMMUNE THROMBOCYTOPENIC PURPURA
     Dosage: 50 MG, QD
     Route: 048
     Dates: start: 20190725, end: 20190813
  2. HYDROCHLOROTHIAZIDE. [Concomitant]
     Active Substance: HYDROCHLOROTHIAZIDE
     Indication: HYPERTENSION
     Dosage: 25 MG, QD (5 YEARS AGO)
     Route: 048
  3. TRAMADOL. [Concomitant]
     Active Substance: TRAMADOL
     Indication: PRODUCT USED FOR UNKNOWN INDICATION
     Dosage: 100 UG, PRN
     Route: 048
     Dates: start: 20190821
  4. LOSARTAN. [Concomitant]
     Active Substance: LOSARTAN
     Indication: HYPERTENSION
     Dosage: 50 MG, QD (5 YEARS AGO)
     Route: 048
  5. AMITRIPTYLINE [Concomitant]
     Active Substance: AMITRIPTYLINE
     Indication: INSOMNIA
     Dosage: 0.5 MG, UNK (10 YEARS AGO)
     Route: 065
  6. REVOLADE [Suspect]
     Active Substance: ELTROMBOPAG
     Dosage: 50 MG, QD
     Route: 048
  7. REVOLADE [Suspect]
     Active Substance: ELTROMBOPAG
     Dosage: 50 MG, QOD
     Route: 048
  8. ZALDIAR [Concomitant]
     Active Substance: ACETAMINOPHEN\TRAMADOL HYDROCHLORIDE
     Indication: HEADACHE
     Route: 048
  9. LOSARTAN. [Concomitant]
     Active Substance: LOSARTAN
     Dosage: 50 UG, Q12H
     Route: 048
  10. AMLODIPINE [Concomitant]
     Active Substance: AMLODIPINE BESYLATE
     Indication: PRODUCT USED FOR UNKNOWN INDICATION
     Dosage: 5 MG, QD (5 YEARS AGO)
     Route: 048
  11. LEVOTHYROXINE. [Concomitant]
     Active Substance: LEVOTHYROXINE
     Indication: PRODUCT USED FOR UNKNOWN INDICATION
     Dosage: 50 UG, QD
     Route: 048
  12. EUTHYROX [Concomitant]
     Active Substance: LEVOTHYROXINE SODIUM
     Indication: HYPOTHYROIDISM
     Dosage: 50 MG, QD (5 YEARS AGO)
     Route: 048

REACTIONS (12)
  - Platelet count decreased [Unknown]
  - Burning sensation [Recovered/Resolved]
  - Thrombosis [Unknown]
  - Pain [Recovered/Resolved]
  - Pain in extremity [Recovered/Resolved]
  - Blood immunoglobulin G decreased [Unknown]
  - Pyrexia [Recovered/Resolved]
  - Headache [Recovered/Resolved]
  - Inflammation [Recovered/Resolved]
  - Erythema [Unknown]
  - Arthralgia [Unknown]
  - Platelet count increased [Recovering/Resolving]

NARRATIVE: CASE EVENT DATE: 20190808
